FAERS Safety Report 7690054-1 (Version None)
Quarter: 2011Q3

REPORT INFORMATION
  Report Type: 
  Country: None (occurrence: None)
  Receive Date: 20110811
  Receipt Date: 20110802
  Transmission Date: 20111222
  Serious: Yes (Hospitalization, Other)
  Sender: FDA-Public Use
  Company Number: 2011SP036945

PATIENT
  Age: 69 Year
  Sex: Male

DRUGS (5)
  1. VALPROIC ACID [Concomitant]
  2. TOPAMAX [Concomitant]
  3. SEROQUEL [Concomitant]
  4. SYCREST (ASENAPINE /05706901/) [Suspect]
     Indication: PRODUCT USED FOR UNKNOWN INDICATION
     Dosage: 10 MG;QD ; 20 MG;QD
     Dates: start: 20110708, end: 20110711
  5. SYCREST (ASENAPINE /05706901/) [Suspect]
     Indication: PRODUCT USED FOR UNKNOWN INDICATION
     Dosage: 10 MG;QD ; 20 MG;QD
     Dates: start: 20110712

REACTIONS (1)
  - RESPIRATORY FAILURE [None]
